FAERS Safety Report 10190403 (Version 1)
Quarter: 2014Q2

REPORT INFORMATION
  Report Type: Spontaneous
  Country: US (occurrence: US)
  Receive Date: 20140522
  Receipt Date: 20140522
  Transmission Date: 20141212
  Serious: No
  Sender: FDA-Public Use
  Company Number: US-009507513-1405NLD009960

PATIENT
  Sex: Male
  Weight: 131.97 kg

DRUGS (26)
  1. LOVASTATIN [Suspect]
  2. BLINDED THERAPY [Concomitant]
     Indication: PROPHYLAXIS
     Dates: start: 20120828, end: 20120828
  3. BUPROPION HYDROCHLORIDE [Concomitant]
     Indication: DEPRESSION
     Dosage: 150 MG, BID
     Route: 048
     Dates: start: 201008
  4. LISINOPRIL [Concomitant]
     Indication: HYPERTENSION
     Dosage: 40 MG, QD
     Route: 048
     Dates: start: 201208
  5. CRESTOR [Concomitant]
     Indication: HYPERLIPIDAEMIA
     Dosage: 20 MG, QD
     Route: 048
     Dates: start: 201008
  6. RAPAFLO [Concomitant]
     Indication: BENIGN PROSTATIC HYPERPLASIA
     Dosage: 8 MG, QD
     Route: 048
     Dates: start: 201208
  7. AMBIEN [Concomitant]
     Indication: INSOMNIA
     Dosage: 5.0 MG, PRN
     Route: 048
     Dates: start: 201208
  8. ZOFRAN [Concomitant]
     Indication: PROPHYLAXIS OF NAUSEA AND VOMITING
     Dosage: 8.0 MG, PRN
     Route: 048
     Dates: start: 201208
  9. ZOFRAN [Concomitant]
     Dosage: 16 MG, QW
     Route: 042
     Dates: start: 20121001, end: 20121001
  10. ZOFRAN [Concomitant]
     Dosage: UNK
     Dates: start: 20121008, end: 20121008
  11. PRILOSEC [Concomitant]
     Indication: DYSPEPSIA
     Dosage: 20.0 MG, QD
     Route: 048
     Dates: start: 201208
  12. VITAMINS (UNSPECIFIED) [Concomitant]
     Indication: VITAMIN SUPPLEMENTATION
     Dosage: UNK, QD
     Route: 048
     Dates: start: 201008
  13. DULCOLAX [Concomitant]
     Indication: CONSTIPATION
     Dosage: UNK, QD
     Route: 048
     Dates: start: 201208
  14. MAGNESIUM (UNSPECIFIED) [Concomitant]
     Indication: HYPOMAGNESAEMIA
     Dosage: 2000 MG, QM
     Route: 042
     Dates: start: 20120717, end: 20121002
  15. POTASSIUM (UNSPECIFIED) [Concomitant]
     Indication: HYPOKALAEMIA
     Dosage: 40 MEQ, QM
     Route: 042
     Dates: start: 20120717, end: 20121002
  16. DECADRON (DEXAMETHASONE) [Concomitant]
     Indication: PROPHYLAXIS OF NAUSEA AND VOMITING
     Dosage: UNK
     Dates: start: 20120716
  17. DECADRON (DEXAMETHASONE) [Concomitant]
     Indication: ALLERGY PROPHYLAXIS
     Dosage: UNK
     Dates: start: 20120911, end: 20121011
  18. DECADRON (DEXAMETHASONE) [Concomitant]
     Dosage: 12 MG, QW
     Route: 042
     Dates: start: 20121001, end: 20121001
  19. DECADRON (DEXAMETHASONE) [Concomitant]
     Dosage: UNK
     Dates: start: 20121002, end: 20121002
  20. POTASSIUM CHLORIDE [Concomitant]
     Dosage: UNK
     Dates: start: 20121002, end: 20121002
  21. MAGNESIUM SULFATE [Concomitant]
     Dosage: UNK
     Dates: start: 20121002, end: 20121002
  22. CISPLATIN [Concomitant]
     Dosage: UNK
     Dates: start: 20121002, end: 20121002
  23. GEMZAR [Concomitant]
     Indication: CHEMOTHERAPY
     Dosage: 2500 MG, QW
     Route: 042
     Dates: start: 20121001, end: 20121001
  24. GEMZAR [Concomitant]
     Dosage: UNK
     Dates: start: 20121008, end: 20121008
  25. LOVENOX [Concomitant]
     Indication: ANTICOAGULANT THERAPY
     Dosage: UNK
     Dates: start: 20121012
  26. COUMADIN [Concomitant]
     Indication: ANTICOAGULANT THERAPY
     Dosage: UNK
     Dates: start: 20121012

REACTIONS (1)
  - Drug hypersensitivity [Unknown]
